FAERS Safety Report 4713017-4 (Version None)
Quarter: 2005Q3

REPORT INFORMATION
  Report Type: 
  Country: None (occurrence: None)
  Receive Date: 20050713
  Receipt Date: 20050704
  Transmission Date: 20060218
  Serious: Yes (Other)
  Sender: FDA-Public Use
  Company Number: PHNU2005PL02491

PATIENT

DRUGS (4)
  1. DIOVAN HCT [Suspect]
     Indication: HYPERTENSION
     Dosage: 80/12.5 MG
     Route: 048
     Dates: start: 20050630, end: 20050630
  2. NEBILET [Concomitant]
     Dosage: 2.5 MG, QD
     Route: 048
  3. CORDARONE [Concomitant]
     Dosage: 200 MG, QD
  4. SINTROM [Concomitant]
     Dosage: 4 MG/D

REACTIONS (2)
  - CONVULSION [None]
  - TREMOR [None]
